FAERS Safety Report 12551545 (Version 2)
Quarter: 2016Q3

REPORT INFORMATION
  Report Type: Spontaneous
  Country: US (occurrence: US)
  Receive Date: 20160713
  Receipt Date: 20160824
  Transmission Date: 20161109
  Serious: No
  Sender: FDA-Public Use
  Company Number: PHEH2016US016933

PATIENT
  Age: 67 Year
  Sex: Female

DRUGS (1)
  1. GILENYA [Suspect]
     Active Substance: FINGOLIMOD HYDROCHLORIDE
     Indication: PRODUCT USED FOR UNKNOWN INDICATION
     Route: 065

REACTIONS (2)
  - Rash pustular [Recovered/Resolved]
  - Rash pruritic [Recovered/Resolved]

NARRATIVE: CASE EVENT DATE: 20160628
